FAERS Safety Report 8617022-7 (Version None)
Quarter: 2012Q3

REPORT INFORMATION
  Report Type: 
  Country: None (occurrence: None)
  Receive Date: 20120823
  Receipt Date: 20120814
  Transmission Date: 20120928
  Serious: No
  Sender: FDA-Public Use
  Company Number: US-009507513-1208USA006539

PATIENT

DRUGS (3)
  1. RIBAVIRIN [Suspect]
     Dosage: UNK
     Dates: start: 20120607
  2. VICTRELIS [Suspect]
     Indication: HEPATITIS C
     Dosage: 800 MG, Q8H
     Route: 048
     Dates: start: 20120625
  3. PEGASYS [Suspect]
     Dosage: UNK
     Dates: start: 20120607

REACTIONS (5)
  - ASTHENIA [None]
  - VOMITING [None]
  - FATIGUE [None]
  - DYSGEUSIA [None]
  - NAUSEA [None]
